FAERS Safety Report 21316561 (Version 1)
Quarter: 2022Q3

REPORT INFORMATION
  Report Type: Other
  Country: US (occurrence: US)
  Receive Date: 20220911
  Receipt Date: 20220911
  Transmission Date: 20221027
  Serious: Yes (Death, Hospitalization, Other)
  Sender: FDA-Public Use
  Company Number: US-DEXPHARM-20221532

PATIENT
  Age: 63 Year
  Sex: Female

DRUGS (21)
  1. GEMCITABINE [Suspect]
     Active Substance: GEMCITABINE
     Indication: Breast cancer stage III
     Dosage: 5 CYCLES OF GEMCITABINE AND CARBOPLATIN
  2. CARBOPLATIN [Suspect]
     Active Substance: CARBOPLATIN
     Indication: Breast cancer stage III
     Dosage: 5 CYCLES OF GEMCITABINE AND CARBOPLATIN
  3. METHADONE [Suspect]
     Active Substance: METHADONE HYDROCHLORIDE
     Indication: Analgesic therapy
     Dosage: METHADONE 5 MG EVERY 8 HOURS (TAKING TWICE A DAY)
  4. GABAPENTIN [Suspect]
     Active Substance: GABAPENTIN
     Indication: Analgesic therapy
     Dosage: GABAPENTIN 300 MG THRICE A DAY
  5. OXYCODONE [Suspect]
     Active Substance: OXYCODONE
     Indication: Analgesic therapy
     Dosage: OXYCODONE EVERY 4 HOURS AS NEEDED (RECEIVED 5 TIMES A DAY ON AVERAGE)
  6. HYDROMORPHONE [Suspect]
     Active Substance: HYDROMORPHONE
     Indication: Analgesic therapy
     Dosage: IV HYDROMORPHONE 1 MG EVERY 4 HOURS AS NEEDED
     Route: 041
  7. LORAZEPAM [Suspect]
     Active Substance: LORAZEPAM
     Indication: Anxiety
     Dosage: ORAL LORAZEPAM 0.5 MG EVERY 6 HOURS AS NEEDED FOR ANXIETY
     Route: 048
  8. HYDROMORPHONE [Suspect]
     Active Substance: HYDROMORPHONE
     Indication: Pain
     Dosage: HYDROMORPHONE A DEMAND DOSE OF 0.5 MG, 10 MIN LOCKOUT (PATIENT- CONTROLLED ANALGESIA) WAS INITIAT...
  9. DEXAMETHASONE [Suspect]
     Active Substance: DEXAMETHASONE
     Dosage: IV DEXAMETHASONE 10 MG/DAY WAS INITIATED
     Route: 041
  10. LEXAPRO [Suspect]
     Active Substance: ESCITALOPRAM OXALATE
     Indication: Anxiety
     Dosage: 5 MG/DAY
  11. TRAZODONE [Suspect]
     Active Substance: TRAZODONE HYDROCHLORIDE
     Indication: Sleep disorder
  12. RISPERIDONE [Suspect]
     Active Substance: RISPERIDONE
     Indication: Anxiety
  13. LIDOCAINE [Suspect]
     Active Substance: LIDOCAINE
     Indication: Neuralgia
     Dosage: BOLUS 1.5 MG/KG FOLLOWED BY 1 MG/KG/HR
     Route: 041
  14. LIDOCAINE [Suspect]
     Active Substance: LIDOCAINE
     Indication: Neuralgia
     Dosage: LIDOCAINE DOSE WAS TITRATED UP TO 1.5 MG/KG/HR
     Route: 041
  15. CHLORPROMAZINE [Suspect]
     Active Substance: CHLORPROMAZINE
     Indication: Delirium
     Dosage: IV CHLORPROMAZINE 25 MG WAS INFUSED OVER 30 MINUTES AT FOR DELIRIUM AND SLEEP INDUCTION
     Route: 041
  16. HYDROMORPHONE [Suspect]
     Active Substance: HYDROMORPHONE
     Indication: Pain
     Dosage: HYDROMORPHONE 0.6 MG/HR CONTINUOUS INFUSION WITH 1 MG IV AVAILABLE EVERY 1 HOUR AS NEEDED WAS INI...
  17. DEXMEDETOMIDINE [Suspect]
     Active Substance: DEXMEDETOMIDINE
     Dosage: DEXMEDETOMIDINE 0.1 MG/KG/HR INFUSION WAS STARTED
  18. DEXMEDETOMIDINE [Suspect]
     Active Substance: DEXMEDETOMIDINE
     Dosage: DEXMEDETOMIDINE DOSE WAS INCREASED TO 0.2 MG/KG/HR
  19. DEXMEDETOMIDINE [Suspect]
     Active Substance: DEXMEDETOMIDINE
     Dosage: DEXMEDETOMIDINE DOSE WAS AGAIN INCREASED TO 0.4 MG/KG/HR
  20. DEXMEDETOMIDINE [Suspect]
     Active Substance: DEXMEDETOMIDINE
     Dosage: DEXMEDETOMIDINE DOSE INCREASED TO 0.5 MG/KG/HR
  21. HYDROMORPHONE [Suspect]
     Active Substance: HYDROMORPHONE
     Indication: Pain
     Dosage: HYDROMORPHONE INFUSION WAS INCREASED TO 0.8 MG/HR.

REACTIONS (4)
  - Drug ineffective [Fatal]
  - Delirium [Fatal]
  - Hallucination, visual [Fatal]
  - Dysphagia [Fatal]
